FAERS Safety Report 6339501-8 (Version None)
Quarter: 2009Q3

REPORT INFORMATION
  Report Type: 
  Country: None (occurrence: None)
  Receive Date: 20090827
  Receipt Date: 20090624
  Transmission Date: 20100115
  Serious: No
  Sender: FDA-Public Use
  Company Number: 001192

PATIENT
  Sex: Female
  Weight: 54.4 kg

DRUGS (10)
  1. LACOSAMIDE [Suspect]
     Indication: CONVULSION
     Dosage: (150 MG QD ORAL)
     Route: 048
  2. IMITREX /01044801/ [Concomitant]
  3. CARBATROL [Concomitant]
  4. CLONAZEPAM [Concomitant]
  5. INDERAL /00030001/ [Concomitant]
  6. FOLIC ACID [Concomitant]
  7. FLAXSEED OIL [Concomitant]
  8. CALCIUM WITH VITAMIN D /01233101/ [Concomitant]
  9. CENTRUM SILVER /01292501/ [Concomitant]
  10. ASPIRIN [Concomitant]

REACTIONS (1)
  - HEADACHE [None]
